FAERS Safety Report 12861580 (Version 2)
Quarter: 2016Q4

REPORT INFORMATION
  Report Type: Spontaneous
  Country: PT (occurrence: PT)
  Receive Date: 20161019
  Receipt Date: 20161028
  Transmission Date: 20170207
  Serious: Yes (Other)
  Sender: FDA-Public Use
  Company Number: PT-PFIZER INC-2016473631

PATIENT
  Age: 21 Year
  Sex: Male

DRUGS (11)
  1. CYCLOSPORINE A [Suspect]
     Active Substance: CYCLOSPORINE
     Dosage: 4 MG/KG, DAILY, DAY 6
     Dates: start: 201603
  2. CYCLOSPORINE A [Suspect]
     Active Substance: CYCLOSPORINE
     Dosage: 4 MG/KG, DAILY, DAY 4
     Dates: start: 201604, end: 201608
  3. CYCLOSPORINE A [Suspect]
     Active Substance: CYCLOSPORINE
     Indication: ACUTE MYELOID LEUKAEMIA
     Dosage: 6 MG/KG, DAILY, DAY 6
     Dates: start: 201603
  4. CYTARABINE. [Suspect]
     Active Substance: CYTARABINE
     Indication: ACUTE MYELOID LEUKAEMIA
     Dosage: 3000 MG/M2, DAILY (DAYS 1 TO 5)
     Dates: start: 201603
  5. CYTARABINE. [Suspect]
     Active Substance: CYTARABINE
     Dosage: 3000 MG/KG, DAILY, DAYS 1 TO 3
     Dates: start: 201604, end: 201608
  6. DAUNORUBICIN [Suspect]
     Active Substance: DAUNORUBICIN
     Dosage: 45 MG/M2, DAILY, DAYS 4 TO 6
     Dates: start: 201604, end: 201608
  7. CYCLOSPORINE A [Suspect]
     Active Substance: CYCLOSPORINE
     Dosage: 6 MG/KG, DAILY, DAY 4
     Dates: start: 201604, end: 201608
  8. CYTARABINE. [Suspect]
     Active Substance: CYTARABINE
     Dosage: 3000 MG/M2, 2X/DAY 12/12H, DAYS 1, 3 AND 5 (3 CYCLES)
  9. CYCLOSPORINE A [Suspect]
     Active Substance: CYCLOSPORINE
     Dosage: 16 MG/KG, DAILY, DAYS 6 TO 8
     Dates: start: 201603
  10. DAUNORUBICIN [Suspect]
     Active Substance: DAUNORUBICIN
     Indication: ACUTE MYELOID LEUKAEMIA
     Dosage: 45 MG/M2, DAILY (DAYS 6 TO 8)
     Dates: start: 201603
  11. CYCLOSPORINE A [Suspect]
     Active Substance: CYCLOSPORINE
     Dosage: 16 MG/KG, DAILY, DAYS 4 TO 6
     Dates: start: 201604, end: 201608

REACTIONS (2)
  - Mucosal inflammation [Unknown]
  - Febrile neutropenia [Unknown]

NARRATIVE: CASE EVENT DATE: 201603
